FAERS Safety Report 5511224-4 (Version None)
Quarter: 2007Q4

REPORT INFORMATION
  Report Type: 
  Country: None (occurrence: None)
  Receive Date: 20071107
  Receipt Date: 20071031
  Transmission Date: 20080405
  Serious: Yes (Other)
  Sender: FDA-Public Use
  Company Number: CIP07002283

PATIENT
  Age: 53 Year
  Sex: Female

DRUGS (2)
  1. ACTONEL [Suspect]
     Indication: OSTEOPOROSIS
     Dosage: 35 MG, 1 ONLY, ORAL
     Route: 048
  2. CLONAZEPAM [Concomitant]

REACTIONS (2)
  - AMNESTIC DISORDER [None]
  - LOSS OF CONSCIOUSNESS [None]
